FAERS Safety Report 19696503 (Version 1)
Quarter: 2021Q3

REPORT INFORMATION
  Report Type: Spontaneous
  Country: BR (occurrence: BR)
  Receive Date: 20210813
  Receipt Date: 20210813
  Transmission Date: 20211014
  Serious: Yes (Disabling)
  Sender: FDA-Public Use
  Company Number: BR-009507513-2108BRA001980

PATIENT
  Age: 85 Year
  Sex: Male
  Weight: 66 kg

DRUGS (11)
  1. PROLOPA HBS [Concomitant]
     Active Substance: BENSERAZIDE\LEVODOPA
     Dosage: 100/25, ONE TABLET IN THE EVENING
  2. QUETIAPINE. [Concomitant]
     Active Substance: QUETIAPINE
     Dosage: 75 MG, ONE TABLET IN THE EVENING
     Route: 048
  3. BENICAR [Concomitant]
     Active Substance: OLMESARTAN MEDOXOMIL
     Dosage: 20 MG ONE TABLET IN THE MORNING
     Route: 048
  4. INVANZ [Suspect]
     Active Substance: ERTAPENEM SODIUM
     Indication: URINARY TRACT INFECTION
     Dosage: 1 G, ONE AMPOULE DAILY
     Route: 042
     Dates: start: 20210622, end: 20210629
  5. SELOZOK [Concomitant]
     Active Substance: METOPROLOL SUCCINATE
     Dosage: 50 MG, ONE TABLET IN THE MORNING
     Route: 048
  6. NEULEPTIL [PERICIAZINE] [Concomitant]
     Active Substance: PERICIAZINE
     Dosage: 5 DROPS DAILY
  7. ASPIRINA PREVENT [Concomitant]
     Active Substance: ASPIRIN
     Dosage: 100 MG, QD (ONE TABLET AT LUNCH)
     Route: 048
  8. GLIFAGE XR [Concomitant]
     Active Substance: METFORMIN HYDROCHLORIDE
     Dosage: 500 MG, ONE TABLET AT LUNCH AND AND ONE AT DINNER
     Route: 048
  9. ROSUVASTATIN. [Concomitant]
     Active Substance: ROSUVASTATIN
     Dosage: 10 MG, ONE TABLET IN THE EVENING
  10. PROLOPA [Concomitant]
     Active Substance: BENSERAZIDE\LEVODOPA
     Dosage: 100/25MG, ONE TABLET IN THE MORNING, ONE TABLET AT 13:00 AND ONE TABLET AT 19:00
     Route: 048
  11. MEMANTINE. [Concomitant]
     Active Substance: MEMANTINE
     Dosage: 10 MG, ONE IN THE MORNING AND ONE IN THE EVENING

REACTIONS (6)
  - Peripheral swelling [Not Recovered/Not Resolved]
  - Reduced facial expression [Recovered/Resolved]
  - Peripheral swelling [Not Recovered/Not Resolved]
  - Swelling face [Not Recovered/Not Resolved]
  - Mobility decreased [Recovered/Resolved]
  - Disorientation [Recovered/Resolved]

NARRATIVE: CASE EVENT DATE: 20210626
